FAERS Safety Report 6632202-8 (Version None)
Quarter: 2010Q1

REPORT INFORMATION
  Report Type: 
  Country: None (occurrence: None)
  Receive Date: 20100312
  Receipt Date: 20100303
  Transmission Date: 20100710
  Serious: Yes (Hospitalization, Other)
  Sender: FDA-Public Use
  Company Number: CA-ABBOTT-10P-028-0630106-00

PATIENT
  Sex: Female
  Weight: 65.83 kg

DRUGS (9)
  1. HUMIRA [Suspect]
     Indication: CROHN'S DISEASE
     Route: 058
     Dates: start: 20100203
  2. HUMIRA [Suspect]
     Route: 058
     Dates: start: 20081223, end: 20100108
  3. ESTROGEN [Concomitant]
     Indication: DRUG USE FOR UNKNOWN INDICATION
     Dosage: 50 MG BI WEEKLY
  4. CITALOPRAM HYDROBROMIDE [Concomitant]
     Indication: DRUG USE FOR UNKNOWN INDICATION
  5. FOLIC ACID [Concomitant]
     Indication: DRUG USE FOR UNKNOWN INDICATION
  6. METHOTREXATE [Concomitant]
     Indication: DRUG USE FOR UNKNOWN INDICATION
     Route: 050
  7. NEXIUM [Concomitant]
     Indication: DRUG USE FOR UNKNOWN INDICATION
  8. CALCIUM W/VITAMIN D [Concomitant]
     Indication: DRUG USE FOR UNKNOWN INDICATION
  9. IRON [Concomitant]
     Indication: DRUG USE FOR UNKNOWN INDICATION

REACTIONS (9)
  - ABDOMINAL PAIN [None]
  - BLOOD POTASSIUM DECREASED [None]
  - CYSTITIS [None]
  - FOOD INTOLERANCE [None]
  - GASTROINTESTINAL DISORDER [None]
  - INFUSION RELATED REACTION [None]
  - MEDICATION RESIDUE [None]
  - VOMITING [None]
  - WEIGHT DECREASED [None]
